FAERS Safety Report 13447610 (Version 3)
Quarter: 2017Q2

REPORT INFORMATION
  Report Type: Spontaneous
  Country: US (occurrence: US)
  Receive Date: 20170417
  Receipt Date: 20170531
  Transmission Date: 20170830
  Serious: Yes (Other)
  Sender: FDA-Public Use
  Company Number: US-GLAXOSMITHKLINE-US2017054642

PATIENT
  Sex: Female
  Weight: 78.5 kg

DRUGS (1)
  1. ANORO ELLIPTA [Suspect]
     Active Substance: UMECLIDINIUM BROMIDE\VILANTEROL TRIFENATATE
     Indication: PRODUCT USED FOR UNKNOWN INDICATION
     Dosage: UNK
     Dates: start: 20170306, end: 20170319

REACTIONS (4)
  - Pruritus [Unknown]
  - Stomatitis [Unknown]
  - Erythema [Unknown]
  - Stevens-Johnson syndrome [Unknown]
